FAERS Safety Report 18772307 (Version 2)
Quarter: 2021Q1

REPORT INFORMATION
  Report Type: Report from Study
  Country: BR (occurrence: BR)
  Receive Date: 20210121
  Receipt Date: 20210127
  Transmission Date: 20210419
  Serious: Yes (Death, Other)
  Sender: FDA-Public Use
  Company Number: BR-GILEAD-2021-0513792

PATIENT
  Age: 65 Year
  Sex: Female
  Weight: 58 kg

DRUGS (35)
  1. TOCILIZUMAB. [Suspect]
     Active Substance: TOCILIZUMAB
     Indication: COVID-19 PNEUMONIA
     Dosage: DATE OF MOST RECENT DOSE OF STUDY DRUG PRIOR TO ADVERSE EVENT 29?DEC?2020 FROM 3:30 PM TO 4:30 PM
     Route: 042
     Dates: start: 20201228
  2. ONDANSETRON [Concomitant]
     Active Substance: ONDANSETRON
     Indication: NAUSEA
     Dosage: 4 MG
     Dates: start: 20201227, end: 20210102
  3. ROCURONIUM [Concomitant]
     Active Substance: ROCURONIUM BROMIDE
     Indication: SEDATION
     Dosage: 5 AMPULE
     Dates: start: 20201228, end: 20210103
  4. VASOPRESSIN. [Concomitant]
     Active Substance: VASOPRESSIN
     Indication: HAEMODYNAMIC INSTABILITY
     Dosage: 1 AMPULE
     Dates: start: 20201229, end: 20210107
  5. AMIKACIN. [Concomitant]
     Active Substance: AMIKACIN
     Indication: ANTIBIOTIC THERAPY
     Dosage: 1 G
     Dates: start: 20210107
  6. OXYGEN. [Concomitant]
     Active Substance: OXYGEN
     Dosage: 15 L/MIN28?DEC?2020, 28?DEC?2020
     Route: 055
     Dates: start: 20201228
  7. OXYGEN. [Concomitant]
     Active Substance: OXYGEN
     Dosage: 65 %
     Route: 055
     Dates: start: 20210109
  8. AZITROMYCIN [Concomitant]
     Active Substance: AZITHROMYCIN ANHYDROUS
     Indication: COVID-19 PNEUMONIA
     Dates: start: 20201227, end: 20210102
  9. ACETYLCYSTEINE. [Concomitant]
     Active Substance: ACETYLCYSTEINE
     Indication: COVID-19 PNEUMONIA
     Dosage: 600 MG
     Dates: start: 20201227, end: 20201231
  10. MIDAZOLAM. [Concomitant]
     Active Substance: MIDAZOLAM
     Indication: SEDATION
     Dosage: 2 AMPULE
     Dates: start: 20201228
  11. OXYGEN. [Concomitant]
     Active Substance: OXYGEN
     Dosage: 30?DEC?2020, 08?JAN?2021
     Route: 055
     Dates: start: 20210108
  12. REMDESIVIR. [Suspect]
     Active Substance: REMDESIVIR
     Indication: COVID-19 PNEUMONIA
     Dosage: 250 ML, QD
     Route: 042
     Dates: start: 20201228
  13. SALBUTAMOL [Concomitant]
     Active Substance: ALBUTEROL
     Indication: COVID-19 PNEUMONIA
     Dosage: 300 UG
     Dates: start: 20200127
  14. OMEPRAZOLE. [Concomitant]
     Active Substance: OMEPRAZOLE
     Indication: GASTROINTESTINAL DISORDER PROPHYLAXIS
     Dosage: 40 MG
     Dates: start: 20201227
  15. VASOPRESSIN. [Concomitant]
     Active Substance: VASOPRESSIN
     Dosage: 1 AMPULE
     Dates: start: 20210109
  16. AMIODARONE [Concomitant]
     Active Substance: AMIODARONE
     Dosage: 100 MG
     Dates: start: 20210110
  17. DEXAMETHASONE. [Concomitant]
     Active Substance: DEXAMETHASONE
     Indication: COVID-19 PNEUMONIA
     Dosage: 6 MG
     Dates: start: 20201227
  18. PROPOFOL. [Concomitant]
     Active Substance: PROPOFOL
     Indication: SEDATION
     Dosage: 5 U
     Dates: start: 20201228
  19. OXYGEN. [Concomitant]
     Active Substance: OXYGEN
     Dosage: 30?DEC?2020,06?JAN?2021, 07?JAN?2021
     Route: 055
     Dates: start: 20201231
  20. ENALAPRIL [Concomitant]
     Active Substance: ENALAPRIL
     Indication: HYPERTENSION
     Dosage: 10 MG
     Dates: start: 20201227, end: 20201229
  21. FENTANIL [Concomitant]
     Active Substance: FENTANYL
     Indication: SEDATION
     Dosage: 50 ML
     Dates: start: 20201228
  22. CISATRACURIUM. [Concomitant]
     Active Substance: CISATRACURIUM
     Indication: SEDATION
     Dosage: 2 AMPULE
     Dates: start: 20210105, end: 20210105
  23. POLYMYXIN B. [Concomitant]
     Active Substance: POLYMYXIN B
     Indication: ANTIBIOTIC THERAPY
     Dosage: 500000 IU
     Dates: start: 20210107
  24. OXYGEN. [Concomitant]
     Active Substance: OXYGEN
     Dosage: 29?DEC?2020, 29?DEC?2020,07?JAN?2021
     Route: 055
     Dates: start: 20201229
  25. OXYGEN. [Concomitant]
     Active Substance: OXYGEN
     Dosage: 04?JAN?2021,
     Route: 055
     Dates: start: 20210103
  26. OXYGEN. [Concomitant]
     Active Substance: OXYGEN
     Dosage: 02?JAN?2021
     Route: 055
     Dates: start: 20210101
  27. NPH INSULIN [Concomitant]
     Active Substance: INSULIN BEEF
     Indication: DIABETES MELLITUS
     Dosage: 10 IU
     Dates: start: 20201227
  28. ENOXAPARIN [Concomitant]
     Active Substance: ENOXAPARIN
     Indication: COVID-19 PNEUMONIA
     Dosage: 40 MG
     Dates: start: 20201227, end: 20201231
  29. NOREPINEPHRINE. [Concomitant]
     Active Substance: NOREPINEPHRINE
     Indication: HAEMODYNAMIC INSTABILITY
     Dosage: 4 AMPULE
     Dates: start: 20201228
  30. OXYGEN. [Concomitant]
     Active Substance: OXYGEN
     Dosage: 28?DEC?2020
     Route: 055
     Dates: start: 20210110
  31. OXYGEN. [Concomitant]
     Active Substance: OXYGEN
     Dosage: 31?DEC?2020
     Route: 055
     Dates: start: 20210101
  32. CEFTRIAXONE. [Concomitant]
     Active Substance: CEFTRIAXONE
     Indication: COVID-19 PNEUMONIA
     Dosage: 1 G
     Dates: start: 20201227, end: 20210102
  33. OXYGEN. [Concomitant]
     Active Substance: OXYGEN
     Dosage: 60 %
     Route: 055
     Dates: start: 20210109
  34. OXYGEN. [Concomitant]
     Active Substance: OXYGEN
     Dosage: 03?JAN?2021,05?JAN?2021, 04?JAN?2021
     Route: 055
     Dates: start: 20210102
  35. OXYGEN. [Concomitant]
     Active Substance: OXYGEN
     Dosage: UNK
     Route: 007
     Dates: start: 20210105

REACTIONS (1)
  - Sepsis [Fatal]

NARRATIVE: CASE EVENT DATE: 20210107
